FAERS Safety Report 19954265 (Version 1)
Quarter: 2021Q4

REPORT INFORMATION
  Report Type: Spontaneous
  Country: DE (occurrence: DE)
  Receive Date: 20211013
  Receipt Date: 20211013
  Transmission Date: 20220303
  Serious: Yes (Hospitalization)
  Sender: FDA-Public Use
  Company Number: DE-ADRED-06737-01

PATIENT
  Age: 43 Year
  Sex: Female
  Weight: 105 kg

DRUGS (1)
  1. RAMIPRIL [Suspect]
     Active Substance: RAMIPRIL
     Indication: Product used for unknown indication
     Dosage: 2.5 MILLIGRAM, QD, (2.5 MG, 1-0-0-0, TABLETTEN)
     Route: 048

REACTIONS (3)
  - Syncope [Unknown]
  - Fall [Unknown]
  - Nausea [Unknown]
